FAERS Safety Report 23513163 (Version 1)
Quarter: 2024Q1

REPORT INFORMATION
  Report Type: Spontaneous
  Country: GB (occurrence: GB)
  Receive Date: 20240212
  Receipt Date: 20240212
  Transmission Date: 20240410
  Serious: Yes (Other)
  Sender: FDA-Public Use
  Company Number: None

PATIENT
  Age: 33 Year
  Sex: Female

DRUGS (3)
  1. LIPITOR [Suspect]
     Active Substance: ATORVASTATIN CALCIUM
     Indication: Product used for unknown indication
     Dosage: UNK
     Route: 065
     Dates: start: 20230906, end: 20240127
  2. IBUPROFEN [Concomitant]
     Active Substance: IBUPROFEN
     Indication: Arthritis
     Dosage: UNK
     Route: 065
  3. ACETAMINOPHEN [Concomitant]
     Active Substance: ACETAMINOPHEN
     Indication: Arthritis
     Dosage: UNK
     Route: 065

REACTIONS (4)
  - Dysphagia [Not Recovered/Not Resolved]
  - Oropharyngeal pain [Not Recovered/Not Resolved]
  - Sensation of foreign body [Not Recovered/Not Resolved]
  - Gingival pain [Not Recovered/Not Resolved]
